FAERS Safety Report 10197175 (Version 1)
Quarter: 2014Q2

REPORT INFORMATION
  Report Type: Spontaneous
  Country: US (occurrence: None)
  Receive Date: 20140523
  Receipt Date: 20140523
  Transmission Date: 20141212
  Serious: No
  Sender: FDA-Public Use
  Company Number: None

PATIENT
  Age: 34 Year
  Sex: Female

DRUGS (1)
  1. ZYRTEC [Suspect]
     Indication: SINUSITIS
     Route: 048
     Dates: start: 20130728, end: 20140513

REACTIONS (3)
  - Pruritus [None]
  - Drug withdrawal syndrome [None]
  - Product label issue [None]
